FAERS Safety Report 20863283 (Version 1)
Quarter: 2022Q2

REPORT INFORMATION
  Report Type: Spontaneous
  Country: US (occurrence: US)
  Receive Date: 20220523
  Receipt Date: 20220523
  Transmission Date: 20220721
  Serious: Yes (Other)
  Sender: FDA-Public Use
  Company Number: US-PFIZER INC-202200725812

PATIENT
  Age: 57 Year
  Sex: Male
  Weight: 102.06 kg

DRUGS (2)
  1. PAXLOVID [Suspect]
     Active Substance: NIRMATRELVIR\RITONAVIR
     Indication: COVID-19 treatment
     Dosage: [PF-07321332 300 MG]/[RITONAVIR 100 MG]; 2X/DAY
     Dates: start: 20220513, end: 20220516
  2. CALQUENCE [Concomitant]
     Active Substance: ACALABRUTINIB
     Indication: Chronic lymphocytic leukaemia
     Dosage: UNK
     Route: 048
     Dates: start: 202012, end: 20220513

REACTIONS (8)
  - Lymph node palpable [Unknown]
  - Lymphadenopathy [Unknown]
  - Lymph node pain [Not Recovered/Not Resolved]
  - Swelling face [Unknown]
  - Swelling [Unknown]
  - Oropharyngeal pain [Recovering/Resolving]
  - White blood cell count abnormal [Unknown]
  - Platelet count decreased [Unknown]

NARRATIVE: CASE EVENT DATE: 20220514
